FAERS Safety Report 21963159 (Version 2)
Quarter: 2023Q1

REPORT INFORMATION
  Report Type: Spontaneous
  Country: US (occurrence: US)
  Receive Date: 20230207
  Receipt Date: 20230307
  Transmission Date: 20230417
  Serious: Yes (Other)
  Sender: FDA-Public Use
  Company Number: US-PFIZER INC-202300051814

PATIENT
  Age: 57 Year
  Sex: Male
  Weight: 74.39 kg

DRUGS (9)
  1. XELJANZ XR [Suspect]
     Active Substance: TOFACITINIB CITRATE
     Indication: Illness
     Dosage: 11 MG, 1X/DAY
  2. XELJANZ XR [Suspect]
     Active Substance: TOFACITINIB CITRATE
     Indication: Movement disorder
  3. ATORVASTATIN [Concomitant]
     Active Substance: ATORVASTATIN
     Indication: Blood cholesterol increased
     Dosage: 10 MG, 1X/DAY
  4. LISINOPRIL [Concomitant]
     Active Substance: LISINOPRIL
     Indication: Hypertension
     Dosage: 40 MG, 1X/DAY
  5. MELOXICAM [Concomitant]
     Active Substance: MELOXICAM
     Indication: Inflammation
     Dosage: 15 MG, AS NEEDED
  6. MELOXICAM [Concomitant]
     Active Substance: MELOXICAM
     Indication: Arthralgia
  7. METFORMIN [Concomitant]
     Active Substance: METFORMIN HYDROCHLORIDE
     Indication: Blood glucose increased
     Dosage: UNK, 2X/DAY
  8. OZEMPIC [Concomitant]
     Active Substance: SEMAGLUTIDE
     Indication: Blood glucose increased
     Dosage: INJECTED INTO THE STOMACH, BEEN ON IT FOR FOUR MONTHS
  9. ZOLPIDEM [Concomitant]
     Active Substance: ZOLPIDEM TARTRATE
     Indication: Sleep disorder
     Dosage: 10 MG, 1X/DAY (AT NIGHT)

REACTIONS (3)
  - Tendonitis [Unknown]
  - Pain [Unknown]
  - Off label use [Unknown]

NARRATIVE: CASE EVENT DATE: 20211217
